FAERS Safety Report 18232935 (Version 2)
Quarter: 2020Q3

REPORT INFORMATION
  Report Type: Spontaneous
  Country: BR (occurrence: BR)
  Receive Date: 20200904
  Receipt Date: 20200909
  Transmission Date: 20201103
  Serious: Yes (Other)
  Sender: FDA-Public Use
  Company Number: BR-PFIZER INC-2020342586

PATIENT
  Age: 41 Year
  Sex: Female

DRUGS (3)
  1. ELIFORE [Suspect]
     Active Substance: DESVENLAFAXINE SUCCINATE
     Dosage: 100 MG
     Dates: start: 2020, end: 2020
  2. ELIFORE [Suspect]
     Active Substance: DESVENLAFAXINE SUCCINATE
     Dosage: 75 MG
     Dates: start: 2020
  3. ELIFORE [Suspect]
     Active Substance: DESVENLAFAXINE SUCCINATE
     Dosage: 25 MG
     Dates: start: 2018, end: 2020

REACTIONS (7)
  - Pain [Unknown]
  - Product prescribing error [Unknown]
  - Incorrect dose administered [Unknown]
  - COVID-19 [Unknown]
  - Malaise [Unknown]
  - Headache [Unknown]
  - Lung disorder [Unknown]

NARRATIVE: CASE EVENT DATE: 2018
